FAERS Safety Report 7828595-6 (Version None)
Quarter: 2011Q4

REPORT INFORMATION
  Report Type: 
  Country: None (occurrence: None)
  Receive Date: 20111020
  Receipt Date: 20111018
  Transmission Date: 20120403
  Serious: Yes (Hospitalization)
  Sender: FDA-Public Use
  Company Number: DK-JNJFOC-20111007718

PATIENT
  Sex: Female

DRUGS (4)
  1. LEFLUNOMIDE [Concomitant]
     Dates: start: 20110622
  2. SIMPONI [Suspect]
     Route: 058
     Dates: start: 20110622
  3. SIMPONI [Suspect]
     Indication: RHEUMATOID ARTHRITIS
     Route: 058
     Dates: start: 20101215
  4. LEFLUNOMIDE [Concomitant]
     Indication: RHEUMATOID ARTHRITIS
     Dates: start: 20100830

REACTIONS (1)
  - CEREBROVASCULAR ACCIDENT [None]
